FAERS Safety Report 8798212 (Version 1)
Quarter: 2012Q4

REPORT INFORMATION
  Report Type: 
  Country: FR (occurrence: FR)
  Receive Date: 20120920
  Receipt Date: 20120920
  Transmission Date: 20130627
  Serious: Yes (Hospitalization, Other)
  Sender: FDA-Public Use
  Company Number: FR-AMGEN-FRASP2012058539

PATIENT
  Age: 28 Year
  Sex: Female

DRUGS (4)
  1. ENBREL [Suspect]
     Indication: PSORIASIS
     Dosage: UNK
     Route: 058
     Dates: start: 200701, end: 201009
  2. METHOTREXATE SODIUM [Suspect]
     Dosage: UNK
     Route: 048
     Dates: start: 2003, end: 2007
  3. REMICADE [Suspect]
     Dosage: 100 mg, UNK
     Route: 042
     Dates: start: 200409, end: 200611
  4. HUMIRA [Suspect]
     Dosage: 40 mg, UNK
     Route: 058
     Dates: start: 201009, end: 201207

REACTIONS (3)
  - Alopecia totalis [Unknown]
  - Alopecia [Unknown]
  - Uveitis [Unknown]
